FAERS Safety Report 24203778 (Version 5)
Quarter: 2025Q3

REPORT INFORMATION
  Report Type: Spontaneous
  Country: US (occurrence: US)
  Receive Date: 20240813
  Receipt Date: 20250905
  Transmission Date: 20251021
  Serious: No
  Sender: DOMPE FARMACEUTICI
  Company Number: US-FARMAPROD-202407-2741

PATIENT
  Age: 69 Year
  Sex: Female

DRUGS (25)
  1. OXERVATE [Suspect]
     Active Substance: CENEGERMIN-BKBJ
     Indication: Neurotrophic keratopathy
     Route: 047
     Dates: start: 20240719, end: 20240802
  2. OXERVATE [Suspect]
     Active Substance: CENEGERMIN-BKBJ
     Dates: start: 2024, end: 20240912
  3. LUMIGAN [Concomitant]
     Active Substance: BIMATOPROST
  4. SIMBRINZA [Concomitant]
     Active Substance: BRIMONIDINE TARTRATE\BRINZOLAMIDE
     Dosage: 1 %-0.2 %
  5. TOBRADEX [Concomitant]
     Active Substance: DEXAMETHASONE\TOBRAMYCIN
     Dosage: 0.3 %-0.1%
  6. LOVASTATIN [Concomitant]
     Active Substance: LOVASTATIN
  7. FAMCICLOVIR [Concomitant]
     Active Substance: FAMCICLOVIR
  8. CYCLOBENZAPRINE HYDROCHLORIDE [Concomitant]
     Active Substance: CYCLOBENZAPRINE HYDROCHLORIDE
  9. LISINOPRIL [Concomitant]
     Active Substance: LISINOPRIL
  10. JARDIANCE [Concomitant]
     Active Substance: EMPAGLIFLOZIN
  11. CHONDROITIN SULFATE (BOVINE)\GLUCOSAMINE SULFATE [Concomitant]
     Active Substance: CHONDROITIN SULFATE (BOVINE)\GLUCOSAMINE SULFATE
  12. CALCIUM\CHOLECALCIFEROL [Concomitant]
     Active Substance: CALCIUM\CHOLECALCIFEROL
  13. PANTOPRAZOLE SODIUM [Concomitant]
     Active Substance: PANTOPRAZOLE SODIUM
  14. FISH OIL [Concomitant]
     Active Substance: FISH OIL
  15. METFORMIN HYDROCHLORIDE [Concomitant]
     Active Substance: METFORMIN HYDROCHLORIDE
  16. ZYRTEC [Concomitant]
     Active Substance: CETIRIZINE HYDROCHLORIDE
  17. METAXALONE [Concomitant]
     Active Substance: METAXALONE
  18. VITAMINS [Concomitant]
     Active Substance: VITAMINS
  19. GLIPIZIDE [Concomitant]
     Active Substance: GLIPIZIDE
  20. GLIPIZIDE [Concomitant]
     Active Substance: GLIPIZIDE
  21. FLAXSEED [Concomitant]
     Active Substance: FLAX SEED
  22. FORMULA 303 HERBAL MUSCLE RELAXER [Concomitant]
  23. FAMVIR [Concomitant]
     Active Substance: FAMCICLOVIR
  24. REGENEREYES [Concomitant]
  25. AUTOLOGOUS HUMAN CORNEAL EPITHELIAL CELLS [Concomitant]
     Active Substance: AUTOLOGOUS HUMAN CORNEAL EPITHELIAL CELLS

REACTIONS (13)
  - Corneal deposits [Recovered/Resolved with Sequelae]
  - Eye pain [Not Recovered/Not Resolved]
  - Eye swelling [Unknown]
  - Headache [Unknown]
  - Ocular hyperaemia [Unknown]
  - Photophobia [Unknown]
  - Lacrimation increased [Not Recovered/Not Resolved]
  - Eye irritation [Not Recovered/Not Resolved]
  - Intentional product misuse [Unknown]
  - Visual acuity reduced [Unknown]
  - Vision blurred [Unknown]
  - Eye discharge [Unknown]
  - Disease progression [Unknown]

NARRATIVE: CASE EVENT DATE: 20240802
